FAERS Safety Report 5754569-5 (Version None)
Quarter: 2008Q2

REPORT INFORMATION
  Report Type: 
  Country: None (occurrence: None)
  Receive Date: 20080530
  Receipt Date: 20080520
  Transmission Date: 20081010
  Serious: Yes (Other)
  Sender: FDA-Public Use
  Company Number: NO-PFIZER INC-2008043240

PATIENT
  Sex: Male

DRUGS (6)
  1. LYRICA [Suspect]
     Indication: ANXIETY
     Route: 048
     Dates: start: 20070529, end: 20080311
  2. REMERON [Concomitant]
     Indication: DEPRESSION
     Route: 048
  3. VIVAL [Concomitant]
     Indication: ANXIETY
     Route: 048
  4. ESCITALOPRAM [Concomitant]
     Indication: PANIC DISORDER
     Route: 048
  5. ANTABUSE [Concomitant]
  6. BUSPAR [Concomitant]
     Indication: ANXIETY
     Route: 048

REACTIONS (3)
  - DRUG DEPENDENCE [None]
  - DRUG TOXICITY [None]
  - DRUG WITHDRAWAL SYNDROME [None]
